FAERS Safety Report 20954142 (Version 11)
Quarter: 2023Q4

REPORT INFORMATION
  Report Type: Report from Study
  Country: US (occurrence: US)
  Receive Date: 20220614
  Receipt Date: 20231212
  Transmission Date: 20240109
  Serious: No
  Sender: FDA-Public Use
  Company Number: US-ACADIA PHARMACEUTICALS INC.-ACA-2022-PIM-001804

PATIENT
  Age: 85 Year
  Sex: Female

DRUGS (18)
  1. NUPLAZID [Suspect]
     Active Substance: PIMAVANSERIN TARTRATE
     Indication: Parkinson^s disease psychosis
     Dosage: 34 MILLIGRAM, QD
     Route: 048
     Dates: start: 202205
  2. NUPLAZID [Suspect]
     Active Substance: PIMAVANSERIN TARTRATE
     Indication: Hallucination
     Dosage: 34 MILLIGRAM, QD
     Route: 048
     Dates: start: 20220610
  3. NUPLAZID [Suspect]
     Active Substance: PIMAVANSERIN TARTRATE
     Indication: Delusion
     Dosage: 34 MILLIGRAM, QD
     Route: 048
  4. NUPLAZID [Suspect]
     Active Substance: PIMAVANSERIN TARTRATE
     Indication: Parkinson^s disease
     Dosage: 34 MILLIGRAM, QD
     Route: 048
  5. NUPLAZID [Suspect]
     Active Substance: PIMAVANSERIN TARTRATE
     Dosage: 34 MILLIGRAM, QD
     Route: 048
     Dates: start: 20221006
  6. VITAMIN D3 [Concomitant]
     Active Substance: CHOLECALCIFEROL
  7. HUMALOG [Concomitant]
     Active Substance: INSULIN LISPRO
  8. LANTUS [Concomitant]
     Active Substance: INSULIN GLARGINE
  9. VASCEPA [Concomitant]
     Active Substance: ICOSAPENT ETHYL
  10. TRAZODONE [Concomitant]
     Active Substance: TRAZODONE HYDROCHLORIDE
  11. MONTELUKAST [Concomitant]
     Active Substance: MONTELUKAST SODIUM
  12. METOPROLOL [Concomitant]
     Active Substance: METOPROLOL
  13. LISINOPRIL [Concomitant]
     Active Substance: LISINOPRIL
  14. ISOSORBIDE [Concomitant]
     Active Substance: ISOSORBIDE
  15. GABAPENTIN [Concomitant]
     Active Substance: GABAPENTIN
  16. CLONIDINE [Concomitant]
     Active Substance: CLONIDINE
  17. ATORVASTATIN [Concomitant]
     Active Substance: ATORVASTATIN
  18. ASPIRIN [Concomitant]
     Active Substance: ASPIRIN

REACTIONS (28)
  - Product dose omission issue [Unknown]
  - Nonspecific reaction [Unknown]
  - Hypersomnia [Unknown]
  - Fatigue [Unknown]
  - Nonspecific reaction [Unknown]
  - Nonspecific reaction [Not Recovered/Not Resolved]
  - Product dose omission issue [Recovered/Resolved]
  - Product dose omission in error [Not Recovered/Not Resolved]
  - Product dose omission in error [Recovered/Resolved]
  - Nonspecific reaction [Not Recovered/Not Resolved]
  - Loss of personal independence in daily activities [Unknown]
  - Nonspecific reaction [Not Recovered/Not Resolved]
  - Ataxia [Unknown]
  - Nonspecific reaction [Recovered/Resolved]
  - Product dose omission issue [Recovered/Resolved]
  - Nonspecific reaction [Unknown]
  - Product dose omission issue [Unknown]
  - Gait disturbance [Unknown]
  - Confusional state [Unknown]
  - Hallucination [Unknown]
  - Confusional state [Unknown]
  - Constipation [Unknown]
  - Hallucination [Unknown]
  - Hallucination [Not Recovered/Not Resolved]
  - Confusional state [Not Recovered/Not Resolved]
  - Constipation [Not Recovered/Not Resolved]
  - Hallucination [Unknown]
  - Confusional state [Unknown]

NARRATIVE: CASE EVENT DATE: 20220501
